FAERS Safety Report 7972023 (Version 6)
Quarter: 2013Q2

REPORT INFORMATION
  Report Type: Report from Study
  Country: BE (occurrence: BE)
  Receive Date: 20110602
  Receipt Date: 20130507
  Transmission Date: 20140414
  Serious: Yes (Other)
  Sender: FDA-Public Use
  Company Number: BE-ROCHE-779451

PATIENT
  Age: 40 Year
  Sex: Male

DRUGS (6)
  1. PEG-INTERFERON ALFA 2A [Suspect]
     Indication: CHRONIC HEPATITIS C
     Route: 058
     Dates: start: 20100512, end: 20110506
  2. RIBAVIRIN [Suspect]
     Indication: CHRONIC HEPATITIS C
     Route: 048
     Dates: start: 20100512, end: 20110513
  3. GOLIMUMAB [Suspect]
     Indication: RHEUMATIC DISORDER
     Route: 058
     Dates: start: 20110405, end: 20110518
  4. PAROXETINE [Concomitant]
     Indication: DEPRESSION
     Route: 048
  5. VITAMIN B6 [Concomitant]
     Indication: ANTIBIOTIC PROPHYLAXIS
     Route: 048
  6. NICOTIBINE [Concomitant]
     Indication: ANTIBIOTIC PROPHYLAXIS
     Route: 048
     Dates: start: 20110301, end: 20110518

REACTIONS (2)
  - Thrombocytopenia [Recovered/Resolved]
  - Alcoholism [Recovered/Resolved]
